FAERS Safety Report 13981312 (Version 1)
Quarter: 2017Q3

REPORT INFORMATION
  Report Type: Spontaneous
  Country: US (occurrence: US)
  Receive Date: 20170915
  Receipt Date: 20170915
  Transmission Date: 20171128
  Serious: Yes (Other)
  Sender: FDA-Public Use
  Company Number: None

PATIENT
  Age: 50 Year
  Sex: Female
  Weight: 69.75 kg

DRUGS (2)
  1. CIPRO [Suspect]
     Active Substance: CIPROFLOXACIN HYDROCHLORIDE
     Indication: MASTOIDITIS
     Route: 048
     Dates: start: 20170818, end: 20170827
  2. MULTIVITAMIN [Concomitant]
     Active Substance: VITAMINS

REACTIONS (11)
  - Arthralgia [None]
  - Paraesthesia [None]
  - Neck pain [None]
  - Back pain [None]
  - Chills [None]
  - Hypoaesthesia [None]
  - Palpitations [None]
  - Burning sensation [None]
  - Skin burning sensation [None]
  - Abdominal pain upper [None]
  - Nightmare [None]

NARRATIVE: CASE EVENT DATE: 20170823
